FAERS Safety Report 18632347 (Version 1)
Quarter: 2020Q4

REPORT INFORMATION
  Report Type: Spontaneous
  Country: US (occurrence: US)
  Receive Date: 20201217
  Receipt Date: 20201217
  Transmission Date: 20210114
  Serious: Yes (Other)
  Sender: FDA-Public Use
  Company Number: US-ENDO PHARMACEUTICALS INC-2020-005620

PATIENT
  Age: 65 Year
  Sex: Male
  Weight: 113.38 kg

DRUGS (5)
  1. XIAFLEX [Suspect]
     Active Substance: COLLAGENASE CLOSTRIDIUM HISTOLYTICUM
     Dosage: 0.9 MG, CYCLE 3, 2 INJECTIONS, 3 DAYS APART, EVERY 6WKS
     Route: 026
  2. XIAFLEX [Suspect]
     Active Substance: COLLAGENASE CLOSTRIDIUM HISTOLYTICUM
     Dosage: 0.9 MG, CYCLE 1, 2 INJECTIONS, 3 DAYS APART, EVERY 6WKS
     Route: 026
     Dates: start: 20200120
  3. XIAFLEX [Suspect]
     Active Substance: COLLAGENASE CLOSTRIDIUM HISTOLYTICUM
     Dosage: 0.9 MG, CYCLE 4, INJECTION 1
     Route: 026
  4. XIAFLEX [Suspect]
     Active Substance: COLLAGENASE CLOSTRIDIUM HISTOLYTICUM
     Indication: PEYRONIE^S DISEASE
     Dosage: 0.9 MG, CYCLE 4, INJECTION 2
     Route: 026
     Dates: start: 20200903
  5. XIAFLEX [Suspect]
     Active Substance: COLLAGENASE CLOSTRIDIUM HISTOLYTICUM
     Dosage: 0.9 MG, CYCLE 2, 2 INJECTIONS, 3 DAYS APART, EVERY 6WKS
     Route: 026

REACTIONS (1)
  - Penis disorder [Recovered/Resolved]

NARRATIVE: CASE EVENT DATE: 20200728
